FAERS Safety Report 4314853-9 (Version None)
Quarter: 2004Q1

REPORT INFORMATION
  Report Type: 
  Country: None (occurrence: None)
  Receive Date: 20040310
  Receipt Date: 20040310
  Transmission Date: 20041129
  Serious: Yes (Other)
  Sender: FDA-Public Use
  Company Number: None

PATIENT
  Age: 3 Year
  Sex: Male
  Weight: 18.8 kg

DRUGS (1)
  1. ADVATE 468 UNITS [Suspect]
     Indication: FACTOR VIII DEFICIENCY
     Dosage: 468 UNITS IV
     Route: 042

REACTIONS (2)
  - CATHETER RELATED COMPLICATION [None]
  - THROMBOSIS [None]
